FAERS Safety Report 24779209 (Version 2)
Quarter: 2025Q1

REPORT INFORMATION
  Report Type: Spontaneous
  Country: CA (occurrence: CA)
  Receive Date: 20241226
  Receipt Date: 20250129
  Transmission Date: 20250409
  Serious: Yes (Other)
  Sender: TAKEDA
  Company Number: CA-TAKEDA-2024TUS128620

PATIENT
  Age: 59 Year
  Sex: Female

DRUGS (4)
  1. MESALAMINE [Suspect]
     Active Substance: MESALAMINE
     Indication: Product used for unknown indication
  2. METHOTREXATE [Suspect]
     Active Substance: METHOTREXATE
     Indication: Product used for unknown indication
  3. ENTOCORT [Concomitant]
     Active Substance: BUDESONIDE
     Indication: Condition aggravated
  4. REMICADE [Concomitant]
     Active Substance: INFLIXIMAB
     Dosage: UNK, Q6WEEKS
     Dates: start: 2016

REACTIONS (2)
  - Breast cancer female [Unknown]
  - Drug intolerance [Unknown]
